FAERS Safety Report 4592428-4 (Version None)
Quarter: 2005Q1

REPORT INFORMATION
  Report Type: 
  Country: None (occurrence: None)
  Receive Date: 20050228
  Receipt Date: 20050124
  Transmission Date: 20050727
  Serious: Yes (Other)
  Sender: FDA-Public Use
  Company Number: US-BRISTOL-MYERS SQUIBB COMPANY-12836193

PATIENT
  Age: 14 Year

DRUGS (1)
  1. ABILIFY [Suspect]
     Dosage: AT NIGHT
     Route: 048

REACTIONS (1)
  - CONVULSION [None]
